FAERS Safety Report 13930350 (Version 9)
Quarter: 2020Q4

REPORT INFORMATION
  Report Type: Report from Study
  Country: GB (occurrence: GB)
  Receive Date: 20170901
  Receipt Date: 20201113
  Transmission Date: 20210113
  Serious: Yes (Hospitalization, Other)
  Sender: FDA-Public Use
  Company Number: GB-VERTEX PHARMACEUTICALS-2017-004684

PATIENT
  Age: 23 Year
  Sex: Female
  Weight: 42 kg

DRUGS (36)
  1. CALCICHEW [Concomitant]
     Active Substance: CALCIUM CARBONATE
  2. POSACONAZOLE [Concomitant]
     Active Substance: POSACONAZOLE
     Indication: FUNGAL INFECTION
     Dosage: 300 MG, QD. USED FOR } 3 MONTHS
     Route: 048
     Dates: start: 2017
  3. TAZOCIN [Suspect]
     Active Substance: PIPERACILLIN SODIUM\TAZOBACTAM SODIUM
     Indication: PRODUCT USED FOR UNKNOWN INDICATION
     Dosage: UNK
     Route: 065
     Dates: start: 20170706, end: 20170724
  4. VITAMIN D [Concomitant]
     Active Substance: VITAMIN D NOS
  5. BUDESONIDE. [Concomitant]
     Active Substance: BUDESONIDE
  6. MIRTAZEPINE TEVA [Concomitant]
     Active Substance: MIRTAZAPINE
     Indication: DEPRESSION
  7. AZITHROMYCIN ANHYDROUS. [Concomitant]
     Active Substance: AZITHROMYCIN ANHYDROUS
     Dosage: 500 MG, (M, W, F)
  8. CITALOPRAM [Concomitant]
     Active Substance: CITALOPRAM HYDROBROMIDE
  9. MENADIOL SODIUM PHOSPHATE [Concomitant]
  10. SALBUTAMOL [Concomitant]
     Active Substance: ALBUTEROL
  11. ZOPICLONE [Concomitant]
     Active Substance: ZOPICLONE
  12. TOBRAMYCIN. [Suspect]
     Active Substance: TOBRAMYCIN
     Indication: INFECTIVE PULMONARY EXACERBATION OF CYSTIC FIBROSIS
     Dosage: 7 MILLIGRAM/KILOGRAM, QD
     Route: 042
     Dates: start: 20170706, end: 20170728
  13. DOMPERIDONE [Concomitant]
     Active Substance: DOMPERIDONE
  14. OMEPRAZOLE. [Concomitant]
     Active Substance: OMEPRAZOLE
  15. AZTREONAM. [Concomitant]
     Active Substance: AZTREONAM
     Dosage: USED FOR }3 MONTHS
  16. HYPERTONIC SALINE SOLUTION [Concomitant]
     Active Substance: SODIUM CHLORIDE
  17. GASTROGRAFIN [Concomitant]
     Active Substance: DIATRIZOATE MEGLUMINE\DIATRIZOATE SODIUM
  18. VENLAFAXINE [Concomitant]
     Active Substance: VENLAFAXINE HYDROCHLORIDE
     Indication: ANXIETY
     Dosage: 75 MG, QD
     Route: 048
  19. CIPROFLOXACIN. [Suspect]
     Active Substance: CIPROFLOXACIN
     Indication: PYREXIA
     Dosage: 40 MG, BID
     Route: 042
     Dates: start: 20170726, end: 20170728
  20. PULMICORT TURBUHALER [Concomitant]
     Active Substance: BUDESONIDE
  21. CREON [Concomitant]
     Active Substance: PANCRELIPASE AMYLASE\PANCRELIPASE LIPASE\PANCRELIPASE PROTEASE
  22. FLIXONASE NASULE [Concomitant]
     Active Substance: FLUTICASONE PROPIONATE
  23. PREDNISOLONE. [Concomitant]
     Active Substance: PREDNISOLONE
     Indication: CYSTIC FIBROSIS
     Dosage: 7.5 MG, QD
     Route: 048
  24. VITAMIN A [Concomitant]
     Active Substance: VITAMIN A
  25. LORATADINE. [Concomitant]
     Active Substance: LORATADINE
  26. MOVICOL [Concomitant]
     Active Substance: POLYETHYLENE GLYCOL 3350\POTASSIUM CHLORIDE\SODIUM BICARBONATE\SODIUM CHLORIDE
  27. MIRTAZEPINE TEVA [Concomitant]
     Active Substance: MIRTAZAPINE
     Indication: ANXIETY
     Dosage: 45 MG, QD
     Route: 048
  28. ORKAMBI [Suspect]
     Active Substance: IVACAFTOR\LUMACAFTOR
     Indication: CYSTIC FIBROSIS
     Dosage: 1 DOSAGE FORM, BID
     Route: 048
     Dates: start: 20170721, end: 20170728
  29. CASPOFUNGIN [Suspect]
     Active Substance: CASPOFUNGIN
     Indication: INFECTIVE PULMONARY EXACERBATION OF CYSTIC FIBROSIS
     Dosage: 75 MG, QD
     Route: 042
     Dates: start: 20170706, end: 20170728
  30. DOXYCYCLINE. [Concomitant]
     Active Substance: DOXYCYCLINE
     Dosage: 100 MG, BID
     Dates: start: 20170612, end: 20170705
  31. MEROPENEM. [Suspect]
     Active Substance: MEROPENEM
     Indication: PYREXIA
     Dosage: 2 GRAM, TID
     Route: 042
     Dates: start: 20170724, end: 20170728
  32. DNASE [Concomitant]
     Active Substance: DEOXYRIBONUCLIEC ACID
  33. VITAMIN K [Concomitant]
     Active Substance: PHYTONADIONE
  34. VENLAFAXINE [Concomitant]
     Active Substance: VENLAFAXINE HYDROCHLORIDE
     Indication: DEPRESSION
  35. URSODEOXYCHOLIC ACID [Concomitant]
     Active Substance: URSODIOL
  36. VITAMIN E [Concomitant]
     Active Substance: .ALPHA.-TOCOPHEROL

REACTIONS (2)
  - Drug reaction with eosinophilia and systemic symptoms [Recovered/Resolved]
  - Off label use [Unknown]

NARRATIVE: CASE EVENT DATE: 20170727
